FAERS Safety Report 20775015 (Version 2)
Quarter: 2022Q2

REPORT INFORMATION
  Report Type: Spontaneous
  Country: US (occurrence: None)
  Receive Date: 20220502
  Receipt Date: 20220603
  Transmission Date: 20220721
  Serious: No
  Sender: FDA-Public Use
  Company Number: 2022A158238

PATIENT
  Age: 36 Year
  Sex: Female
  Weight: 97.1 kg

DRUGS (1)
  1. SAPHNELO [Suspect]
     Active Substance: ANIFROLUMAB-FNIA
     Indication: Systemic lupus erythematosus
     Dosage: 300.0MG UNKNOWN
     Route: 042
     Dates: start: 20220414

REACTIONS (2)
  - Injection site pain [Recovered/Resolved]
  - Infusion site joint pain [Recovering/Resolving]

NARRATIVE: CASE EVENT DATE: 20220414
